FAERS Safety Report 20740672 (Version 1)
Quarter: 2022Q2

REPORT INFORMATION
  Report Type: Spontaneous
  Country: US (occurrence: None)
  Receive Date: 20220421
  Receipt Date: 20220421
  Transmission Date: 20220721
  Serious: No
  Sender: FDA-Public Use
  Company Number: None

PATIENT
  Age: 57 Year
  Sex: Female

DRUGS (24)
  1. AMBRISENTAN [Suspect]
     Active Substance: AMBRISENTAN
     Indication: Pulmonary hypertension
     Dosage: FREQUENCY : DAILY;?
     Route: 048
  2. REMODULIN [Concomitant]
     Active Substance: TREPROSTINIL
  3. FUROSEMIDE [Concomitant]
     Active Substance: FUROSEMIDE
  4. SOLU-MEDROL [Concomitant]
     Active Substance: METHYLPREDNISOLONE SODIUM SUCCINATE
  5. REQUIP [Concomitant]
     Active Substance: ROPINIROLE HYDROCHLORIDE
  6. ADCIRCA [Concomitant]
     Active Substance: TADALAFIL
  7. SCOPOLAMINE [Concomitant]
     Active Substance: SCOPOLAMINE
  8. MORPHINE SULFATE [Concomitant]
     Active Substance: MORPHINE SULFATE
  9. SEROQUEL [Concomitant]
     Active Substance: QUETIAPINE FUMARATE
  10. BIOTIN [Concomitant]
     Active Substance: BIOTIN
  11. DOXYCYCLINE HYCLATE [Concomitant]
     Active Substance: DOXYCYCLINE HYCLATE
  12. PROAIR HFA [Concomitant]
     Active Substance: ALBUTEROL SULFATE
  13. XANAX [Concomitant]
     Active Substance: ALPRAZOLAM
  14. ZANAFLEX [Concomitant]
     Active Substance: TIZANIDINE HYDROCHLORIDE
  15. AMBRISENTAN [Concomitant]
     Active Substance: AMBRISENTAN
  16. TOPAMAX [Concomitant]
     Active Substance: TOPIRAMATE
  17. HYDROXYZINE HYDROCHLORIDE [Concomitant]
     Active Substance: HYDROXYZINE HYDROCHLORIDE
  18. ALYQ [Concomitant]
     Active Substance: TADALAFIL
  19. LORATADINE [Concomitant]
     Active Substance: LORATADINE
  20. ACTEMRA [Concomitant]
     Active Substance: TOCILIZUMAB
  21. PREDNISONE [Concomitant]
     Active Substance: PREDNISONE
  22. LIDOCAINE [Concomitant]
     Active Substance: LIDOCAINE
  23. TADALAFIL [Suspect]
     Active Substance: TADALAFIL
  24. TYVASO [Suspect]
     Active Substance: TREPROSTINIL

REACTIONS (2)
  - Cough [None]
  - Throat irritation [None]

NARRATIVE: CASE EVENT DATE: 20220420
